FAERS Safety Report 14157540 (Version 1)
Quarter: 2017Q4

REPORT INFORMATION
  Report Type: Other
  Country: None (occurrence: US)
  Receive Date: 20171103
  Receipt Date: 20171103
  Transmission Date: 20180321
  Serious: Yes (Death, Life-Threatening, Other)
  Sender: FDA-Public Use
  Company Number: US-MEDAC PHARMA, INC.-2033186

PATIENT
  Age: 48 Year
  Sex: Male

DRUGS (7)
  1. VORICONAZOLE. [Suspect]
     Active Substance: VORICONAZOLE
  2. FLUCONAZOLE. [Suspect]
     Active Substance: FLUCONAZOLE
  3. TACROLIMUS. [Suspect]
     Active Substance: TACROLIMUS
  4. MYCOPHENOLIC ACID. [Suspect]
     Active Substance: MYCOPHENOLIC ACID
  5. METHOTREXATE. [Suspect]
     Active Substance: METHOTREXATE
     Indication: PROPHYLAXIS AGAINST GRAFT VERSUS HOST DISEASE
  6. INFLIXIMAB [Suspect]
     Active Substance: INFLIXIMAB
  7. BORTEZOMIB [Suspect]
     Active Substance: BORTEZOMIB

REACTIONS (1)
  - Cerebral aspergillosis [Fatal]
